FAERS Safety Report 7375782-X (Version None)
Quarter: 2011Q1

REPORT INFORMATION
  Report Type: 
  Country: None (occurrence: None)
  Receive Date: 20110325
  Receipt Date: 20110316
  Transmission Date: 20110831
  Serious: Yes (Hospitalization)
  Sender: FDA-Public Use
  Company Number: A0751459A

PATIENT
  Age: 44 Year
  Sex: Female
  Weight: 147.7 kg

DRUGS (9)
  1. AVANDAMET [Suspect]
     Route: 048
     Dates: start: 20050302
  2. AVANDIA [Suspect]
     Dosage: 8MG PER DAY
     Route: 048
     Dates: end: 20050302
  3. CITALOPRAM HYDROBROMIDE [Concomitant]
  4. HYDROCHLOROTHIAZIDE [Concomitant]
  5. VYTORIN [Concomitant]
  6. COZAAR [Concomitant]
  7. PREMARIN [Concomitant]
  8. TARKA [Concomitant]
  9. METFORMIN HCL [Concomitant]

REACTIONS (9)
  - CARDIAC FAILURE CONGESTIVE [None]
  - VENTRICULAR TACHYCARDIA [None]
  - ANGINA PECTORIS [None]
  - CARDIAC DISORDER [None]
  - WEIGHT INCREASED [None]
  - JOINT SWELLING [None]
  - HEART RATE INCREASED [None]
  - CORONARY ARTERY DISEASE [None]
  - FATIGUE [None]
